FAERS Safety Report 5753188-4 (Version None)
Quarter: 2008Q2

REPORT INFORMATION
  Report Type: 
  Country: None (occurrence: None)
  Receive Date: 20080530
  Receipt Date: 20080529
  Transmission Date: 20081010
  Serious: Yes (Death, Hospitalization)
  Sender: FDA-Public Use
  Company Number: US-BRISTOL-MYERS SQUIBB COMPANY-14150882

PATIENT
  Age: 68 Year
  Sex: Male
  Weight: 92 kg

DRUGS (5)
  1. CARBOPLATIN [Suspect]
     Indication: OESOPHAGEAL CARCINOMA
     Dosage: STARTED ON 18-JUN-2007 WITH AN UNKNOWN DOSE
     Route: 042
     Dates: start: 20070719, end: 20070719
  2. ALIMTA [Suspect]
     Indication: OESOPHAGEAL CARCINOMA
     Dosage: STARTED ON 18-JUN-2007 WITH AN UNKNOWN DOSE
     Route: 042
     Dates: start: 20070719, end: 20070719
  3. RADIATION THERAPY [Suspect]
     Indication: OESOPHAGEAL CARCINOMA
     Dosage: STARTED ON 18JUN07 WITH AN UNKNOWN DOSE. 5040 DF = 5040 CGY
     Dates: start: 20070808, end: 20070808
  4. FOLIC ACID [Concomitant]
     Indication: SUPPLEMENTATION THERAPY
  5. VITAMIN B-12 [Concomitant]
     Indication: SUPPLEMENTATION THERAPY

REACTIONS (3)
  - DEATH [None]
  - OESOPHAGEAL FISTULA [None]
  - PNEUMONIA [None]
